FAERS Safety Report 9157352 (Version 1)
Quarter: 2013Q1

REPORT INFORMATION
  Report Type: Spontaneous
  Country: US (occurrence: None)
  Receive Date: 20130204
  Receipt Date: 20130204
  Transmission Date: 20140127
  Serious: Yes (Other)
  Sender: FDA-Public Use
  Company Number: ADR-2013-00091

PATIENT
  Sex: Female

DRUGS (1)
  1. LIORESAL INTRATHECAL(BACLOFEN INJECTION) 2000 MCG/ML [Suspect]
     Dosage: -300 MCG/DAY

REACTIONS (2)
  - Muscle spasms [None]
  - Cognitive disorder [None]
